FAERS Safety Report 9680687 (Version 1)
Quarter: 2013Q4

REPORT INFORMATION
  Report Type: Spontaneous
  Country: US (occurrence: US)
  Receive Date: 20131111
  Receipt Date: 20131111
  Transmission Date: 20140711
  Serious: Yes (Hospitalization)
  Sender: FDA-Public Use
  Company Number: US-JNJFOC-20131101655

PATIENT
  Sex: 0

DRUGS (1)
  1. SPORANOX [Suspect]
     Indication: ANTIFUNGAL PROPHYLAXIS
     Route: 048

REACTIONS (3)
  - Arthralgia [Unknown]
  - Adverse event [Unknown]
  - Wrong technique in drug usage process [Unknown]
